FAERS Safety Report 21999935 (Version 2)
Quarter: 2023Q1

REPORT INFORMATION
  Report Type: Spontaneous
  Country: AT (occurrence: AT)
  Receive Date: 20230216
  Receipt Date: 20230329
  Transmission Date: 20230418
  Serious: No
  Sender: FDA-Public Use
  Company Number: AT-PFIZER INC-PV202300028105

PATIENT
  Age: 15 Year
  Sex: Male

DRUGS (1)
  1. GENOTROPIN [Suspect]
     Active Substance: SOMATROPIN
     Dosage: UNK

REACTIONS (4)
  - Poor quality device used [Unknown]
  - Incorrect dose administered by device [Unknown]
  - Expired device used [Unknown]
  - Device leakage [Unknown]

NARRATIVE: CASE EVENT DATE: 20230201
